FAERS Safety Report 12124746 (Version 2)
Quarter: 2016Q1

REPORT INFORMATION
  Report Type: Spontaneous
  Country: US (occurrence: US)
  Receive Date: 20160229
  Receipt Date: 20160229
  Transmission Date: 20160526
  Serious: No
  Sender: FDA-Public Use
  Company Number: US-ABBVIE-15P-163-1360778-00

PATIENT
  Sex: Male
  Weight: 63.56 kg

DRUGS (6)
  1. ANDROGEL [Suspect]
     Active Substance: TESTOSTERONE
     Dosage: APPROXIMATELY 5 YEARS
     Route: 061
     Dates: start: 2010, end: 201502
  2. NATURTHROID [Concomitant]
     Indication: HYPOTHYROIDISM
  3. MULTIPLE VITAMIN SUPPLEMENTS [Concomitant]
     Indication: VITAMIN SUPPLEMENTATION
  4. ANDROGEL [Suspect]
     Active Substance: TESTOSTERONE
     Indication: BLOOD TESTOSTERONE DECREASED
     Route: 061
     Dates: start: 20150312
  5. ANDROGEL [Suspect]
     Active Substance: TESTOSTERONE
     Indication: OLFACTO GENITAL DYSPLASIA
     Route: 065
     Dates: start: 201502, end: 20150311
  6. MULTIPLE HERBAL SUPPLEMENTS [Concomitant]
     Indication: PHYTOTHERAPY

REACTIONS (7)
  - Drug dose omission [Unknown]
  - Lyme disease [Not Recovered/Not Resolved]
  - Fatigue [Not Recovered/Not Resolved]
  - Chest pain [Not Recovered/Not Resolved]
  - Blood testosterone decreased [Not Recovered/Not Resolved]
  - Blood testosterone decreased [Not Recovered/Not Resolved]
  - Depression [Not Recovered/Not Resolved]

NARRATIVE: CASE EVENT DATE: 2014
